FAERS Safety Report 23947847 (Version 1)
Quarter: 2024Q2

REPORT INFORMATION
  Report Type: Spontaneous
  Country: US (occurrence: US)
  Receive Date: 20240606
  Receipt Date: 20240606
  Transmission Date: 20240716
  Serious: No
  Sender: FDA-Public Use
  Company Number: US-BAUSCHBL-2024BNL028083

PATIENT
  Age: 77 Year
  Sex: Male

DRUGS (2)
  1. ZIRGAN [Suspect]
     Active Substance: GANCICLOVIR
     Indication: Conjunctivitis
     Route: 047
  2. ARTIFICIAL TEARS [CARMELLOSE SODIUM] [Concomitant]
     Indication: Product used for unknown indication
     Route: 065

REACTIONS (7)
  - Eye pain [Unknown]
  - Eye injury [Unknown]
  - Product package associated injury [Unknown]
  - Drug ineffective [Unknown]
  - Product use complaint [Unknown]
  - Product delivery mechanism issue [Unknown]
  - Product design issue [Unknown]
